FAERS Safety Report 8397979-2 (Version None)
Quarter: 2012Q2

REPORT INFORMATION
  Report Type: 
  Country: None (occurrence: None)
  Receive Date: 20120531
  Receipt Date: 20120530
  Transmission Date: 20120825
  Serious: Yes (Other)
  Sender: FDA-Public Use
  Company Number: PHFR2012IE002694

PATIENT
  Sex: Male

DRUGS (2)
  1. ANTIBIOTICS [Concomitant]
     Indication: PROPHYLAXIS
     Dosage: UNK UKN, UNK
  2. CLOZARIL [Suspect]
     Indication: SCHIZOPHRENIA
     Dosage: UNK UKN, UNK
     Route: 048
     Dates: start: 20080924

REACTIONS (3)
  - LYMPHOCYTOSIS [None]
  - SPHEROCYTIC ANAEMIA [None]
  - RED BLOOD CELL MORPHOLOGY ABNORMAL [None]
